FAERS Safety Report 8558726-4 (Version None)
Quarter: 2012Q3

REPORT INFORMATION
  Report Type: 
  Country: None (occurrence: None)
  Receive Date: 20120801
  Receipt Date: 20120723
  Transmission Date: 20120928
  Serious: No
  Sender: FDA-Public Use
  Company Number: US-009507513-1207USA011146

PATIENT

DRUGS (6)
  1. ALDACTONE [Suspect]
     Dosage: 25 MG, QD
     Route: 048
  2. BUSPAR [Suspect]
     Dosage: 15 MG, QD
  3. BUSPAR [Suspect]
  4. NEXIUM [Suspect]
     Dosage: 40 MG, QD
  5. NAPROSYN [Suspect]
     Dosage: 500 MG, BID
  6. ZOCOR [Suspect]
     Dosage: 20 MG, QD
     Route: 048

REACTIONS (8)
  - DRUG HYPERSENSITIVITY [None]
  - GASTROOESOPHAGEAL REFLUX DISEASE [None]
  - ANXIETY [None]
  - NAUSEA [None]
  - MUSCULOSKELETAL PAIN [None]
  - ABDOMINAL PAIN [None]
  - MUSCLE SPASMS [None]
  - DEPRESSION [None]
